FAERS Safety Report 8131911-1 (Version None)
Quarter: 2012Q1

REPORT INFORMATION
  Report Type: 
  Country: None (occurrence: None)
  Receive Date: 20120213
  Receipt Date: 20120207
  Transmission Date: 20120608
  Serious: Yes (Death)
  Sender: FDA-Public Use
  Company Number: US-PFIZER INC-2011160466

PATIENT
  Sex: Male

DRUGS (1)
  1. TORISEL [Suspect]
     Indication: DESMOPLASTIC SMALL ROUND CELL TUMOUR
     Dosage: 25 MG, WEEKLY, 3 CYCLES
     Route: 042
     Dates: start: 20110126, end: 20110330

REACTIONS (2)
  - DESMOPLASTIC SMALL ROUND CELL TUMOUR [None]
  - DISEASE PROGRESSION [None]
